FAERS Safety Report 23378322 (Version 1)
Quarter: 2024Q1

REPORT INFORMATION
  Report Type: Spontaneous
  Country: US (occurrence: US)
  Receive Date: 20240108
  Receipt Date: 20240108
  Transmission Date: 20240410
  Serious: No
  Sender: FDA-Public Use
  Company Number: US-SANDOZ-SDZ2024US001734

PATIENT
  Age: 65 Year
  Sex: Female

DRUGS (2)
  1. METFORMIN [Suspect]
     Active Substance: METFORMIN HYDROCHLORIDE
     Indication: Product used for unknown indication
     Dosage: UNK
     Route: 065
  2. PIQRAY [Suspect]
     Active Substance: ALPELISIB
     Indication: Breast cancer metastatic
     Dosage: 150 MG, QD
     Route: 048
     Dates: start: 20231210

REACTIONS (3)
  - Hyperglycaemia [Unknown]
  - Rash [Unknown]
  - Stomatitis [Unknown]

NARRATIVE: CASE EVENT DATE: 20231201
